FAERS Safety Report 6652019-8 (Version None)
Quarter: 2010Q1

REPORT INFORMATION
  Report Type: 
  Country: None (occurrence: None)
  Receive Date: 20100323
  Receipt Date: 20100315
  Transmission Date: 20100710
  Serious: Yes (Death)
  Sender: FDA-Public Use
  Company Number: 535533

PATIENT
  Age: 42 Year
  Sex: Male

DRUGS (2)
  1. VINORELBINE TARTRATE [Suspect]
     Indication: NON-SMALL CELL LUNG CANCER
     Dosage: 42 MG, INTRAVENOUS
     Route: 042
  2. CISPLATIN [Suspect]
     Indication: NON-SMALL CELL LUNG CANCER
     Dosage: 126 MG

REACTIONS (1)
  - PULMONARY EMBOLISM [None]
